FAERS Safety Report 21698876 (Version 1)
Quarter: 2022Q4

REPORT INFORMATION
  Report Type: Report from Study
  Country: US (occurrence: US)
  Receive Date: 20221208
  Receipt Date: 20221208
  Transmission Date: 20230113
  Serious: No
  Sender: FDA-Public Use
  Company Number: US-ABBVIE-4227790

PATIENT
  Sex: Female

DRUGS (2)
  1. VENCLEXTA [Suspect]
     Active Substance: VENETOCLAX
     Indication: Acute myeloid leukaemia
     Dosage: TAKE 2 TABLETS OF 10 MILLIGRAM BY MOUTH DAILY WITH FOOD AND WATER ON DAYS 1 TO 2.
     Route: 048
  2. VENCLEXTA [Suspect]
     Active Substance: VENETOCLAX
     Indication: Acute myeloid leukaemia
     Dosage: TAKE 5 TABLETS OF 10 MILLIGRAM BY MOUTH DAILY WITH FOOD AND WATER ON DAYS 1 TO 2
     Route: 048

REACTIONS (1)
  - Off label use [Unknown]
